FAERS Safety Report 25706309 (Version 1)
Quarter: 2025Q3

REPORT INFORMATION
  Report Type: Spontaneous
  Country: US (occurrence: US)
  Receive Date: 20250820
  Receipt Date: 20250820
  Transmission Date: 20251021
  Serious: No
  Sender: CATALYST PHARMA
  Company Number: US-CATALYST PHARMACEUTICALS-US-CATA-25-00865

PATIENT
  Age: 11 Year
  Sex: Male
  Weight: 52.154 kg

DRUGS (9)
  1. AGAMREE [Suspect]
     Active Substance: VAMOROLONE
     Indication: Duchenne muscular dystrophy
     Dosage: 6.4 ML DAILY
     Route: 048
     Dates: start: 20241205
  2. CARVEDILOL [Concomitant]
     Active Substance: CARVEDILOL
     Indication: Cardiovascular disorder
     Dosage: 3.125 MG TWICE DAILY
     Route: 065
  3. ALBUTEROL [Concomitant]
     Active Substance: ALBUTEROL
     Indication: Lung disorder
     Route: 055
  4. ENTRESTO [Concomitant]
     Active Substance: SACUBITRIL\VALSARTAN
     Indication: Cardiovascular disorder
     Dosage: TWICE DAILY
     Route: 065
  5. SPIRONOLACTONE [Concomitant]
     Active Substance: SPIRONOLACTONE
     Indication: Cardiovascular disorder
     Dosage: 25 MG DAILY
     Route: 065
  6. VALTOCO [Concomitant]
     Active Substance: DIAZEPAM
     Indication: Seizure prophylaxis
     Route: 045
  7. FLINTSTONES MULTIVITAMIN [Concomitant]
     Indication: Hypovitaminosis
     Dosage: DAILY
     Route: 065
  8. FAMOTIDINE [Concomitant]
     Active Substance: FAMOTIDINE
     Indication: Gastrooesophageal reflux disease
     Dosage: 10 MG DAILY
     Route: 065
  9. VITAMIN D3 [Concomitant]
     Active Substance: CHOLECALCIFEROL
     Indication: Hypovitaminosis
     Dosage: DAILY
     Route: 065

REACTIONS (2)
  - Abdominal pain upper [Recovered/Resolved]
  - Wrong technique in product usage process [Unknown]

NARRATIVE: CASE EVENT DATE: 20250511
